FAERS Safety Report 7867178-9 (Version None)
Quarter: 2011Q4

REPORT INFORMATION
  Report Type: 
  Country: None (occurrence: None)
  Receive Date: 20111028
  Receipt Date: 20111018
  Transmission Date: 20120403
  Serious: Yes (Hospitalization)
  Sender: FDA-Public Use
  Company Number: US-GLAXOSMITHKLINE-A0915696A

PATIENT
  Age: 66 Year
  Sex: Female

DRUGS (1)
  1. AVANDIA [Suspect]
     Indication: DIABETES MELLITUS
     Dosage: 8MG PER DAY
     Route: 048
     Dates: start: 20050601, end: 20090601

REACTIONS (9)
  - VENTRICULAR TACHYCARDIA [None]
  - CORONARY ARTERY DISEASE [None]
  - ARRHYTHMIA [None]
  - VENTRICULAR FIBRILLATION [None]
  - IMPLANTABLE DEFIBRILLATOR INSERTION [None]
  - MYOCARDIAL INFARCTION [None]
  - HYPERTENSION [None]
  - ANGIOGRAM [None]
  - HYPERLIPIDAEMIA [None]
